FAERS Safety Report 16675718 (Version 2)
Quarter: 2019Q3

REPORT INFORMATION
  Report Type: Report from Study
  Country: US (occurrence: US)
  Receive Date: 20190806
  Receipt Date: 20190923
  Transmission Date: 20191004
  Serious: Yes (Hospitalization)
  Sender: FDA-Public Use
  Company Number: US-NOVOPROD-676065

PATIENT
  Age: 50 Year
  Sex: Female
  Weight: 85 kg

DRUGS (1)
  1. SEMAGLUTIDE B 3.0 MG/ML PDS290 [Suspect]
     Active Substance: SEMAGLUTIDE
     Indication: OBESITY
     Dosage: 2.4,MG,ONCE PER WEEK
     Route: 058
     Dates: start: 20190124

REACTIONS (2)
  - Cholecystitis chronic [Recovered/Resolved]
  - Acute kidney injury [Recovered/Resolved]

NARRATIVE: CASE EVENT DATE: 20190726
